FAERS Safety Report 20718274 (Version 1)
Quarter: 2022Q2

REPORT INFORMATION
  Report Type: Spontaneous
  Country: US (occurrence: US)
  Receive Date: 20220418
  Receipt Date: 20220418
  Transmission Date: 20220721
  Serious: Yes (Other)
  Sender: FDA-Public Use
  Company Number: US-UCBSA-2021009700

PATIENT
  Age: 73 Year
  Sex: Female

DRUGS (1)
  1. NEUPRO [Suspect]
     Active Substance: ROTIGOTINE
     Indication: Restless legs syndrome
     Dosage: 4 MG

REACTIONS (5)
  - Restless legs syndrome [Unknown]
  - Weight increased [Unknown]
  - Fluid retention [Unknown]
  - Increased appetite [Unknown]
  - Overdose [Unknown]
